FAERS Safety Report 20104792 (Version 1)
Quarter: 2021Q4

REPORT INFORMATION
  Report Type: Other
  Country: US (occurrence: None)
  Receive Date: 20211124
  Receipt Date: 20211124
  Transmission Date: 20220303
  Serious: Yes (Other)
  Sender: FDA-Public Use
  Company Number: US-ROCHE-2962596

PATIENT
  Age: 42 Year
  Sex: Female
  Weight: 74.002 kg

DRUGS (5)
  1. OCREVUS [Suspect]
     Active Substance: OCRELIZUMAB
     Indication: Relapsing-remitting multiple sclerosis
     Dosage: 2 SPLIT DOSES ;ONGOING: NO
     Route: 042
     Dates: start: 201910
  2. OCREVUS [Suspect]
     Active Substance: OCRELIZUMAB
     Dosage: REGULAR FULL DOSE ;ONGOING: UNKNOWN?DATE OF TREATMENT: 30/SEP/2019, 14/OCT/2019, 14/APR/2020, 16/OCT
     Route: 042
     Dates: start: 2020
  3. PFIZER-BIONTECH COVID-19 VACCINE [Concomitant]
     Active Substance: TOZINAMERAN
     Dosage: NO
     Dates: start: 20201230, end: 20211019
  4. SOTROVIMAB [Concomitant]
     Active Substance: SOTROVIMAB
  5. COPAXONE [Concomitant]
     Active Substance: GLATIRAMER ACETATE

REACTIONS (5)
  - COVID-19 [Recovering/Resolving]
  - Multiple sclerosis [Not Recovered/Not Resolved]
  - Nasopharyngitis [Recovered/Resolved]
  - Sinus congestion [Recovered/Resolved]
  - Nasal septum deviation [Recovered/Resolved]

NARRATIVE: CASE EVENT DATE: 20200201
